FAERS Safety Report 7025072-X (Version None)
Quarter: 2010Q4

REPORT INFORMATION
  Report Type: 
  Country: None (occurrence: None)
  Receive Date: 20101001
  Receipt Date: 20100921
  Transmission Date: 20110411
  Serious: Yes (Other)
  Sender: FDA-Public Use
  Company Number: CA-ABBOTT-10P-028-0672175-00

PATIENT
  Sex: Male
  Weight: 90.8 kg

DRUGS (1)
  1. HUMIRA [Suspect]
     Indication: PSORIATIC ARTHROPATHY
     Route: 058
     Dates: end: 20100803

REACTIONS (8)
  - ARTHRALGIA [None]
  - BURSA INJURY [None]
  - FALL [None]
  - INFLAMMATION OF WOUND [None]
  - JOINT SWELLING [None]
  - UPPER LIMB FRACTURE [None]
  - WOUND DRAINAGE [None]
  - WOUND INFECTION [None]
